FAERS Safety Report 20764332 (Version 1)
Quarter: 2022Q2

REPORT INFORMATION
  Report Type: Spontaneous
  Country: IN (occurrence: IN)
  Receive Date: 20220428
  Receipt Date: 20220428
  Transmission Date: 20220721
  Serious: Yes (Hospitalization)
  Sender: FDA-Public Use
  Company Number: IN-PFIZER INC-202101507002

PATIENT
  Age: 60 Year
  Sex: Female
  Weight: 70.5 kg

DRUGS (1)
  1. INLYTA [Suspect]
     Active Substance: AXITINIB
     Indication: Metastatic renal cell carcinoma
     Dosage: 5 MG, 2X/DAY
     Route: 048
     Dates: start: 20211028, end: 2022

REACTIONS (8)
  - Pain of skin [Unknown]
  - Nervous system disorder [Unknown]
  - Hypertransaminasaemia [Unknown]
  - Pain in extremity [Unknown]
  - Back pain [Unknown]
  - Neoplasm progression [Unknown]
  - Blood pressure increased [Unknown]
  - COVID-19 [Unknown]
